FAERS Safety Report 13412117 (Version 2)
Quarter: 2017Q4

REPORT INFORMATION
  Report Type: Spontaneous
  Country: US (occurrence: US)
  Receive Date: 20170406
  Receipt Date: 20171123
  Transmission Date: 20180320
  Serious: Yes (Other)
  Sender: FDA-Public Use
  Company Number: US-JNJFOC-20170316677

PATIENT
  Sex: Male

DRUGS (32)
  1. RISPERIDONE. [Suspect]
     Active Substance: RISPERIDONE
     Indication: COGNITIVE DISORDER
     Route: 048
     Dates: start: 20160630, end: 20160705
  2. RISPERDAL [Suspect]
     Active Substance: RISPERIDONE
     Indication: COGNITIVE DISORDER
     Route: 048
     Dates: start: 20030801, end: 20040419
  3. RISPERDAL [Suspect]
     Active Substance: RISPERIDONE
     Indication: COGNITIVE DISORDER
     Route: 048
     Dates: start: 20080520
  4. RISPERDAL [Suspect]
     Active Substance: RISPERIDONE
     Indication: PSYCHOTIC DISORDER
     Route: 048
     Dates: start: 20040825, end: 20050422
  5. RISPERDAL [Suspect]
     Active Substance: RISPERIDONE
     Indication: PSYCHOTIC DISORDER
     Route: 048
     Dates: start: 20030801, end: 20040419
  6. RISPERDAL [Suspect]
     Active Substance: RISPERIDONE
     Indication: DEPRESSION
     Route: 048
     Dates: start: 20040825, end: 20050422
  7. INVEGA [Suspect]
     Active Substance: PALIPERIDONE
     Indication: PSYCHOTIC DISORDER
     Route: 048
     Dates: start: 20070719, end: 20070927
  8. RISPERDAL [Suspect]
     Active Substance: RISPERIDONE
     Indication: PERSONALITY DISORDER
     Route: 048
     Dates: start: 20050718, end: 20060107
  9. RISPERDAL [Suspect]
     Active Substance: RISPERIDONE
     Indication: COGNITIVE DISORDER
     Route: 048
     Dates: start: 20050718, end: 20060107
  10. RISPERDAL [Suspect]
     Active Substance: RISPERIDONE
     Indication: DEPRESSION
     Route: 048
     Dates: start: 20030801, end: 20040419
  11. RISPERIDONE. [Suspect]
     Active Substance: RISPERIDONE
     Indication: PERSONALITY DISORDER
     Route: 048
     Dates: start: 20160630, end: 20160705
  12. RISPERIDONE. [Suspect]
     Active Substance: RISPERIDONE
     Indication: DEPRESSION
     Dosage: IN VARYING DOSES OF 0.5 MG, 1MG AND 2 MG
     Route: 048
     Dates: start: 20120214, end: 20141022
  13. INVEGA [Suspect]
     Active Substance: PALIPERIDONE
     Indication: DEPRESSION
     Route: 048
     Dates: start: 20070719, end: 20070927
  14. RISPERDAL [Suspect]
     Active Substance: RISPERIDONE
     Indication: PERSONALITY DISORDER
     Route: 048
     Dates: start: 20080520
  15. RISPERIDONE. [Suspect]
     Active Substance: RISPERIDONE
     Indication: PSYCHOTIC DISORDER
     Dosage: IN VARYING DOSES OF 0.5 MG, 1MG AND 2 MG
     Route: 048
     Dates: start: 20120214, end: 20141022
  16. INVEGA [Suspect]
     Active Substance: PALIPERIDONE
     Indication: PERSONALITY DISORDER
     Route: 048
     Dates: start: 20070719, end: 20070927
  17. RISPERDAL [Suspect]
     Active Substance: RISPERIDONE
     Indication: COGNITIVE DISORDER
     Route: 048
     Dates: start: 20040825, end: 20050422
  18. RISPERDAL [Suspect]
     Active Substance: RISPERIDONE
     Indication: PSYCHOTIC DISORDER
     Route: 048
     Dates: start: 20050718, end: 20060107
  19. INVEGA [Suspect]
     Active Substance: PALIPERIDONE
     Indication: PERSONALITY DISORDER
     Route: 048
     Dates: start: 20080728, end: 20080808
  20. INVEGA [Suspect]
     Active Substance: PALIPERIDONE
     Indication: COGNITIVE DISORDER
     Route: 048
     Dates: start: 20080728, end: 20080808
  21. RISPERDAL [Suspect]
     Active Substance: RISPERIDONE
     Indication: PERSONALITY DISORDER
     Route: 048
     Dates: start: 20040825, end: 20050422
  22. RISPERDAL [Suspect]
     Active Substance: RISPERIDONE
     Indication: DEPRESSION
     Route: 048
     Dates: start: 20050718, end: 20060107
  23. RISPERIDONE. [Suspect]
     Active Substance: RISPERIDONE
     Indication: COGNITIVE DISORDER
     Dosage: IN VARYING DOSES OF 0.5 MG, 1MG AND 2 MG
     Route: 048
     Dates: start: 20120214, end: 20141022
  24. RISPERIDONE. [Suspect]
     Active Substance: RISPERIDONE
     Indication: DEPRESSION
     Route: 048
     Dates: start: 20160630, end: 20160705
  25. INVEGA [Suspect]
     Active Substance: PALIPERIDONE
     Indication: COGNITIVE DISORDER
     Route: 048
     Dates: start: 20070719, end: 20070927
  26. RISPERDAL [Suspect]
     Active Substance: RISPERIDONE
     Indication: PSYCHOTIC DISORDER
     Route: 048
     Dates: start: 20080520
  27. INVEGA [Suspect]
     Active Substance: PALIPERIDONE
     Indication: PSYCHOTIC DISORDER
     Route: 048
     Dates: start: 20080728, end: 20080808
  28. RISPERIDONE. [Suspect]
     Active Substance: RISPERIDONE
     Indication: PSYCHOTIC DISORDER
     Route: 048
     Dates: start: 20160630, end: 20160705
  29. INVEGA [Suspect]
     Active Substance: PALIPERIDONE
     Indication: DEPRESSION
     Route: 048
     Dates: start: 20080728, end: 20080808
  30. RISPERDAL [Suspect]
     Active Substance: RISPERIDONE
     Indication: PERSONALITY DISORDER
     Route: 048
     Dates: start: 20030801, end: 20040419
  31. RISPERDAL [Suspect]
     Active Substance: RISPERIDONE
     Indication: DEPRESSION
     Route: 048
     Dates: start: 20080520
  32. RISPERIDONE. [Suspect]
     Active Substance: RISPERIDONE
     Indication: PERSONALITY DISORDER
     Dosage: IN VARYING DOSES OF 0.5 MG, 1MG AND 2 MG
     Route: 048
     Dates: start: 20120214, end: 20141022

REACTIONS (2)
  - Emotional disorder [Unknown]
  - Gynaecomastia [Unknown]
